FAERS Safety Report 24054986 (Version 1)
Quarter: 2024Q3

REPORT INFORMATION
  Report Type: Report from Study
  Country: CA (occurrence: CA)
  Receive Date: 20240705
  Receipt Date: 20240705
  Transmission Date: 20241016
  Serious: Yes (Death, Other)
  Sender: SANDOZ
  Company Number: CA-NOVPHSZ-PHHY2019CA219720

PATIENT
  Sex: Female

DRUGS (2)
  1. ERELZI [Suspect]
     Active Substance: ETANERCEPT-SZZS
     Indication: Rheumatoid arthritis
     Dosage: 50 MG, QW
     Route: 058
     Dates: start: 20190424
  2. ERELZI [Suspect]
     Active Substance: ETANERCEPT-SZZS
     Dosage: 50 MG,  EVERY 4 DAYS
     Route: 058
     Dates: start: 20190424

REACTIONS (3)
  - Death [Fatal]
  - Off label use [Unknown]
  - Drug ineffective [Unknown]
